FAERS Safety Report 4913674-3 (Version None)
Quarter: 2006Q1

REPORT INFORMATION
  Report Type: 
  Country: None (occurrence: None)
  Receive Date: 20060216
  Receipt Date: 20060203
  Transmission Date: 20060701
  Serious: Yes (Hospitalization)
  Sender: FDA-Public Use
  Company Number: FR-JNJFOC-20060202173

PATIENT
  Age: 80 Year
  Sex: Female

DRUGS (6)
  1. TRAMADOL HCL [Suspect]
     Indication: DRUG USE FOR UNKNOWN INDICATION
     Route: 048
  2. DI-ANTALVIC [Interacting]
     Route: 048
  3. DI-ANTALVIC [Interacting]
     Indication: DRUG USE FOR UNKNOWN INDICATION
     Route: 048
  4. BROMAZEPAM [Interacting]
     Indication: DRUG USE FOR UNKNOWN INDICATION
     Route: 065
  5. SERESTA [Interacting]
     Indication: DRUG USE FOR UNKNOWN INDICATION
     Route: 048
  6. CLONAZEPAM [Concomitant]
     Route: 048

REACTIONS (3)
  - BACK PAIN [None]
  - DRUG INTERACTION [None]
  - FALL [None]
